FAERS Safety Report 23147017 (Version 1)
Quarter: 2023Q4

REPORT INFORMATION
  Report Type: Spontaneous
  Country: JP (occurrence: JP)
  Receive Date: 20231106
  Receipt Date: 20231106
  Transmission Date: 20240110
  Serious: Yes (Other)
  Sender: FDA-Public Use
  Company Number: JP-TAKEDA-2023TJP014591

PATIENT
  Sex: Male

DRUGS (1)
  1. TRINTELLIX [Suspect]
     Active Substance: VORTIOXETINE HYDROBROMIDE
     Indication: Dementia
     Dosage: UNK
     Route: 065

REACTIONS (5)
  - Deafness [Unknown]
  - Dementia Alzheimer^s type [Unknown]
  - Cerebrovascular disorder [Unknown]
  - Anger [Unknown]
  - Off label use [Unknown]
